FAERS Safety Report 17281243 (Version 1)
Quarter: 2020Q1

REPORT INFORMATION
  Report Type: Spontaneous
  Country: BE (occurrence: BE)
  Receive Date: 20200117
  Receipt Date: 20200117
  Transmission Date: 20200409
  Serious: Yes (Other)
  Sender: FDA-Public Use
  Company Number: BE-ROCHE-2517342

PATIENT
  Age: 53 Year

DRUGS (1)
  1. OCREVUS [Suspect]
     Active Substance: OCRELIZUMAB
     Indication: RELAPSING-REMITTING MULTIPLE SCLEROSIS
     Route: 065
     Dates: start: 201809

REACTIONS (5)
  - Pyrexia [Unknown]
  - Thyroiditis subacute [Unknown]
  - Dysphagia [Unknown]
  - Thyroid disorder [Unknown]
  - Malaise [Unknown]

NARRATIVE: CASE EVENT DATE: 201903
